FAERS Safety Report 10736153 (Version 1)
Quarter: 2015Q1

REPORT INFORMATION
  Report Type: Report from Study
  Country: US (occurrence: None)
  Receive Date: 20150121
  Receipt Date: 20150121
  Transmission Date: 20150721
  Serious: Yes (Other)
  Sender: FDA-Public Use
  Company Number: ADR-2015-00097

PATIENT
  Age: 49 Year
  Sex: Male

DRUGS (2)
  1. HYDROMORPHONE [Suspect]
     Active Substance: HYDROMORPHONE
     Indication: PAIN
  2. BACLOFEN. [Suspect]
     Active Substance: BACLOFEN
     Indication: PAIN

REACTIONS (7)
  - Muscle strain [None]
  - Muscle rigidity [None]
  - Nerve injury [None]
  - Scoliosis [None]
  - Myositis [None]
  - Meningism [None]
  - Myofascial spasm [None]
